FAERS Safety Report 17436172 (Version 1)
Quarter: 2020Q1

REPORT INFORMATION
  Report Type: Spontaneous
  Country: JP (occurrence: JP)
  Receive Date: 20200219
  Receipt Date: 20200219
  Transmission Date: 20200409
  Serious: Yes (Disabling)
  Sender: FDA-Public Use
  Company Number: JP-JNJFOC-20200223374

PATIENT
  Age: 83 Year
  Sex: Male
  Weight: 49 kg

DRUGS (13)
  1. E KEPPRA [Concomitant]
     Active Substance: LEVETIRACETAM
     Route: 065
  2. TEGRETOL [Concomitant]
     Active Substance: CARBAMAZEPINE
     Route: 065
  3. ACETAMINOPHEN. [Concomitant]
     Active Substance: ACETAMINOPHEN
     Route: 065
  4. BELSOMRA [Concomitant]
     Active Substance: SUVOREXANT
     Route: 065
  5. FAMOTIDINE. [Concomitant]
     Active Substance: FAMOTIDINE
     Route: 065
  6. PHENOBARBITAL. [Concomitant]
     Active Substance: PHENOBARBITAL
     Dosage: POWDER (EXCEPT [DPO])
     Route: 065
  7. SODIUM VALPROATE [Concomitant]
     Active Substance: VALPROATE SODIUM
     Route: 065
  8. LAC-B [Concomitant]
     Active Substance: BIFIDOBACTERIUM SPP.
     Route: 065
  9. SODIUM BICARBONATE. [Concomitant]
     Active Substance: SODIUM BICARBONATE
     Route: 065
  10. TOPINA [Suspect]
     Active Substance: TOPIRAMATE
     Indication: STATUS EPILEPTICUS
     Dosage: AFTER BREAKFAST AND DINNER
     Route: 048
     Dates: start: 20200101, end: 20200105
  11. SODIUM CHLORIDE. [Concomitant]
     Active Substance: SODIUM CHLORIDE
     Route: 065
  12. FYCOMPA [Concomitant]
     Active Substance: PERAMPANEL
     Route: 065
  13. TOPINA [Suspect]
     Active Substance: TOPIRAMATE
     Route: 048
     Dates: start: 20200106, end: 20200120

REACTIONS (1)
  - Liver disorder [Recovered/Resolved]

NARRATIVE: CASE EVENT DATE: 20200117
